FAERS Safety Report 19998690 (Version 1)
Quarter: 2021Q4

REPORT INFORMATION
  Report Type: Spontaneous
  Country: US (occurrence: US)
  Receive Date: 20211026
  Receipt Date: 20211026
  Transmission Date: 20220303
  Serious: Yes (Other)
  Sender: FDA-Public Use
  Company Number: US-GLAXOSMITHKLINE-US2021GSK222232

PATIENT
  Sex: Male

DRUGS (4)
  1. ZANTAC [Suspect]
     Active Substance: RANITIDINE HYDROCHLORIDE
     Dosage: UNKNOWN AT THIS TIME OVER THE COUNTER
     Route: 065
     Dates: start: 198301, end: 199912
  2. ZANTAC [Suspect]
     Active Substance: RANITIDINE HYDROCHLORIDE
     Dosage: UNKNOWN AT THIS TIME OVER THE COUNTER
     Route: 065
     Dates: start: 198301, end: 199912
  3. RANITIDINE [Suspect]
     Active Substance: RANITIDINE
     Dosage: UNKNOWN|OVER THE COUNTER
     Route: 065
     Dates: start: 198301, end: 199912
  4. RANITIDINE [Suspect]
     Active Substance: RANITIDINE
     Dosage: UNKNOWN|OVER THE COUNTER
     Route: 065
     Dates: start: 198301, end: 199912

REACTIONS (2)
  - Oesophageal carcinoma [Unknown]
  - Renal cancer [Unknown]
